FAERS Safety Report 13158409 (Version 1)
Quarter: 2017Q1

REPORT INFORMATION
  Report Type: Spontaneous
  Country: US (occurrence: US)
  Receive Date: 20170127
  Receipt Date: 20170127
  Transmission Date: 20170428
  Serious: Yes (Death)
  Sender: FDA-Public Use
  Company Number: US-LPDUSPRD-20170038

PATIENT
  Age: 43 Year
  Sex: Male

DRUGS (7)
  1. ASPIRIN. [Concomitant]
     Active Substance: ASPIRIN
     Dosage: DOSE NOT PROVIDED
     Route: 065
  2. SIMVASTATIN. [Concomitant]
     Active Substance: SIMVASTATIN
     Dosage: DOSE NOT PROVIDED
     Route: 065
  3. DEXAMETHASONE SODIUM PHOSPHATE INJECTION, USP (4901-25) [Suspect]
     Active Substance: DEXAMETHASONE SODIUM PHOSPHATE
     Dosage: DOSE NOT PROVIDED
     Route: 042
  4. DEPO-MEDROL [Suspect]
     Active Substance: METHYLPREDNISOLONE ACETATE
     Dosage: DOSE NOT PROVIDED
     Route: 014
  5. WARFARIN [Concomitant]
     Active Substance: WARFARIN
     Dosage: DOSE NOT PROVIDED
     Route: 065
  6. UNSPECIFIED SYSTEMIC CORTICOSTEROIDS [Concomitant]
     Dosage: DOSE NOT PROVIDED
     Route: 065
  7. METOPROLOL. [Concomitant]
     Active Substance: METOPROLOL
     Dosage: DOSE NOT PROVIDED
     Route: 065

REACTIONS (4)
  - Endophthalmitis [Unknown]
  - Haemorrhage intracranial [Fatal]
  - Septic embolus [Unknown]
  - Fungal infection [Unknown]
